FAERS Safety Report 11009898 (Version 1)
Quarter: 2015Q2

REPORT INFORMATION
  Report Type: Spontaneous
  Country: US (occurrence: US)
  Receive Date: 20150410
  Receipt Date: 20150410
  Transmission Date: 20150821
  Serious: No
  Sender: FDA-Public Use
  Company Number: US-BAYER-2015-120840

PATIENT
  Age: 46 Year
  Sex: Female

DRUGS (2)
  1. MIRENA [Suspect]
     Active Substance: LEVONORGESTREL
     Indication: CONTRACEPTION
     Dosage: 20 MCG/24HR, CONT
     Route: 015
     Dates: start: 20141216, end: 20150303
  2. MIRENA [Suspect]
     Active Substance: LEVONORGESTREL
     Indication: VAGINAL HAEMORRHAGE

REACTIONS (1)
  - Device expulsion [None]

NARRATIVE: CASE EVENT DATE: 20150303
